FAERS Safety Report 6504106-2 (Version None)
Quarter: 2009Q4

REPORT INFORMATION
  Report Type: 
  Country: None (occurrence: None)
  Receive Date: 20091217
  Receipt Date: 20091214
  Transmission Date: 20100525
  Serious: Yes (Death)
  Sender: FDA-Public Use
  Company Number: FR-WYE-G05137809

PATIENT
  Sex: Female
  Weight: 60 kg

DRUGS (14)
  1. GEMTUZUMAB OZOGAMICIN [Suspect]
     Indication: ACUTE MYELOID LEUKAEMIA
     Dosage: 5 MG TOTAL DAILY
     Route: 042
     Dates: start: 20080711, end: 20080717
  2. DAUNORUBICIN [Suspect]
     Indication: ACUTE MYELOID LEUKAEMIA
     Dosage: 100 MG TOTAL DAILY
     Route: 042
     Dates: start: 20080711, end: 20080713
  3. TRACE ELEMENTS [Concomitant]
     Dosage: 1 G TOTAL DAILY
     Route: 042
     Dates: start: 20080721, end: 20080728
  4. PERFALGAN [Concomitant]
     Dosage: 3 G TOTAL DAILY
     Route: 058
     Dates: start: 20080724, end: 20080728
  5. CERNEVIT-12 [Concomitant]
     Dosage: 1 AMPULE TOTAL DAILY
     Route: 042
     Dates: start: 20080721, end: 20080728
  6. PRIMPERAN TAB [Concomitant]
     Dosage: 6 AMPULES TOTAL DAILY
     Route: 042
  7. LEXOMIL [Concomitant]
     Dosage: UNKNOWN
     Route: 048
     Dates: start: 20080723, end: 20080728
  8. FORTUM [Concomitant]
     Dosage: 6 G TOTAL DAILY
     Route: 042
     Dates: start: 20080726
  9. AMIKLIN [Concomitant]
     Dosage: 1 G TOTAL DAILY
     Route: 042
     Dates: start: 20080726
  10. CANCIDAS [Concomitant]
     Dosage: 50 MG TOTAL DAILY
     Route: 042
     Dates: start: 20080724
  11. VANCOMYCIN [Concomitant]
     Dosage: 2.5 G TOTAL DAILY
     Route: 042
     Dates: start: 20080720
  12. NEUPOGEN [Concomitant]
     Dosage: 300 MG TOTAL DAILY
     Route: 042
     Dates: start: 20080726
  13. ARACYTINE [Suspect]
     Indication: ACUTE MYELOID LEUKAEMIA
     Dosage: 320 MG TOTAL DAILY
     Route: 042
     Dates: start: 20080711, end: 20080718
  14. MOPRAL [Concomitant]
     Dosage: 200 MG TOTAL DAILY
     Route: 048
     Dates: start: 20080721, end: 20080728

REACTIONS (3)
  - CEREBRAL HAEMORRHAGE [None]
  - INTRACRANIAL HAEMATOMA [None]
  - THROMBOCYTOPENIA [None]
